FAERS Safety Report 8374556-0 (Version None)
Quarter: 2012Q2

REPORT INFORMATION
  Report Type: 
  Country: None (occurrence: None)
  Receive Date: 20120521
  Receipt Date: 20120508
  Transmission Date: 20120825
  Serious: Yes (Other)
  Sender: FDA-Public Use
  Company Number: CA-JNJFOC-20120508570

PATIENT
  Sex: Male
  Weight: 132 kg

DRUGS (2)
  1. HYDROCORTISONE [Concomitant]
     Indication: PREMEDICATION
     Route: 065
  2. REMICADE [Suspect]
     Indication: CROHN'S DISEASE
     Route: 042
     Dates: start: 20110208

REACTIONS (1)
  - RETINAL DETACHMENT [None]
